FAERS Safety Report 9174109 (Version 2)
Quarter: 2013Q2

REPORT INFORMATION
  Report Type: Spontaneous
  Country: US (occurrence: None)
  Receive Date: 20130314
  Receipt Date: 20130509
  Transmission Date: 20140414
  Serious: Yes (Other)
  Sender: FDA-Public Use
  Company Number: SPI201300160

PATIENT
  Age: 18 Year
  Sex: Male
  Weight: 68.5 kg

DRUGS (9)
  1. AMITIZA (LUBIPROSTONE) CAPSULE, 24MCG [Suspect]
     Indication: CONSTIPATION
     Route: 048
     Dates: start: 20121217, end: 20130220
  2. NAPROXEN (NAPROXEN) [Concomitant]
  3. BENZTROPINE (BENZATROPINE MESILATE) [Concomitant]
  4. RISPERDAL (RISPERIDONE) [Concomitant]
  5. SINGULAIR [Concomitant]
  6. CLOMIPRAMINE (CLOMIPRAMINE) [Concomitant]
  7. DULCOLAX (BISACODYL) [Concomitant]
  8. MIRALAX [Concomitant]
  9. MAGNESIUM CITRATE (MAGNESIUM CITRATE) [Concomitant]

REACTIONS (12)
  - Weight decreased [None]
  - Fall [None]
  - Grunting [None]
  - Injury [None]
  - Muscle tightness [None]
  - Dehydration [None]
  - Tachycardia [None]
  - Dyspnoea [None]
  - Chest discomfort [None]
  - Grimacing [None]
  - Constipation [None]
  - Syncope [None]
